FAERS Safety Report 4325376-5 (Version None)
Quarter: 2004Q1

REPORT INFORMATION
  Report Type: 
  Country: None (occurrence: None)
  Receive Date: 20040324
  Receipt Date: 20040219
  Transmission Date: 20041129
  Serious: Yes (Other)
  Sender: FDA-Public Use
  Company Number: WAES 0402SWE00012

PATIENT
  Age: 41 Year
  Sex: Male

DRUGS (2)
  1. TAB EZETIMIBE UNK [Suspect]
     Indication: TYPE IIA HYPERLIPIDAEMIA
     Dosage: 10 MG/DAILY/PO
     Route: 048
     Dates: start: 20030522
  2. SIMVASTATIN [Suspect]
     Indication: TYPE IIA HYPERLIPIDAEMIA
     Dosage: 80 MG DAILY PO
     Route: 048
     Dates: start: 20030522

REACTIONS (1)
  - CONVULSION [None]
